FAERS Safety Report 15068236 (Version 2)
Quarter: 2018Q3

REPORT INFORMATION
  Report Type: Spontaneous
  Country: US (occurrence: US)
  Receive Date: 20180626
  Receipt Date: 20180709
  Transmission Date: 20181010
  Serious: Yes (Death)
  Sender: FDA-Public Use
  Company Number: US-TEVA-2018-US-913793

PATIENT

DRUGS (2)
  1. 5?FLUOROURACIL [Suspect]
     Active Substance: FLUOROURACIL
     Indication: KERATOACANTHOMA
     Route: 026
  2. METHOTREXATE. [Suspect]
     Active Substance: METHOTREXATE
     Indication: KERATOACANTHOMA
     Route: 026

REACTIONS (5)
  - Metastasis [Fatal]
  - Acquired gene mutation [Fatal]
  - Squamous cell carcinoma of skin [Fatal]
  - Disease recurrence [Fatal]
  - Keratoacanthoma [Fatal]
